FAERS Safety Report 7814980-5 (Version None)
Quarter: 2011Q4

REPORT INFORMATION
  Report Type: 
  Country: None (occurrence: None)
  Receive Date: 20111014
  Receipt Date: 20090130
  Transmission Date: 20120403
  Serious: Yes (Other)
  Sender: FDA-Public Use
  Company Number: US-GLAXOSMITHKLINE-A0766940A

PATIENT
  Sex: Female

DRUGS (1)
  1. AVANDIA [Suspect]
     Indication: DIABETES MELLITUS

REACTIONS (14)
  - MYOCARDIAL INFARCTION [None]
  - HEPATIC STEATOSIS [None]
  - HEPATOMEGALY [None]
  - SPINAL COLUMN STENOSIS [None]
  - ABDOMINAL PAIN [None]
  - BACK PAIN [None]
  - OEDEMA PERIPHERAL [None]
  - LIMB INJURY [None]
  - FALL [None]
  - MUSCULOSKELETAL CHEST PAIN [None]
  - CORONARY ARTERY DISEASE [None]
  - VERTIGO [None]
  - PNEUMONIA [None]
  - HYPOAESTHESIA [None]
